FAERS Safety Report 12907305 (Version 3)
Quarter: 2017Q1

REPORT INFORMATION
  Report Type: Report from Study
  Country: JP (occurrence: JP)
  Receive Date: 20161103
  Receipt Date: 20170206
  Transmission Date: 20170428
  Serious: Yes (Life-Threatening, Hospitalization, Other)
  Sender: FDA-Public Use
  Company Number: JP-GILEAD-2013-0070939

PATIENT
  Age: 56 Year
  Sex: Female
  Weight: 60 kg

DRUGS (18)
  1. AMBRISENTAN [Suspect]
     Active Substance: AMBRISENTAN
     Indication: PULMONARY ARTERIAL HYPERTENSION
     Dosage: 5 MG, BID
     Route: 048
     Dates: start: 20111005, end: 201505
  2. PREDNISOLONE. [Concomitant]
     Active Substance: PREDNISOLONE
     Dosage: 2 MG, QD
     Dates: start: 20150604
  3. ENALAPRIL [Concomitant]
     Active Substance: ENALAPRIL
     Dosage: UNK
     Dates: start: 201506
  4. PREDNISOLONE. [Concomitant]
     Active Substance: PREDNISOLONE
     Indication: PULMONARY ARTERIAL HYPERTENSION
     Dosage: 2 MG, QD
     Dates: end: 20150523
  5. NORVASC [Concomitant]
     Active Substance: AMLODIPINE BESYLATE
     Dosage: 20 MG, QD
  6. PARIET [Concomitant]
     Active Substance: RABEPRAZOLE SODIUM
     Dates: end: 20121012
  7. JUVELA N [Concomitant]
     Active Substance: TOCOPHERYL NICOTINATE, D-.ALPHA.
     Indication: PROPHYLAXIS
     Dates: end: 20120420
  8. NEXIUM [Concomitant]
     Active Substance: ESOMEPRAZOLE MAGNESIUM
     Dosage: 20 MG, QD
     Route: 048
     Dates: start: 20121012
  9. EDIROL [Concomitant]
     Active Substance: ELDECALCITOL
     Dosage: UNK
     Dates: start: 201506
  10. ADCIRCA [Concomitant]
     Active Substance: TADALAFIL
     Indication: PULMONARY ARTERIAL HYPERTENSION
     Dosage: 40 MG, QD
     Dates: end: 20150522
  11. BERASUS [Concomitant]
     Active Substance: BERAPROST SODIUM
     Indication: PULMONARY ARTERIAL HYPERTENSION
     Dosage: 240 UG, BID
     Route: 048
     Dates: end: 20150522
  12. NORVASC [Concomitant]
     Active Substance: AMLODIPINE BESYLATE
     Dosage: 20 MG, QD
  13. PREDONINE [Concomitant]
     Active Substance: PREDNISOLONE
     Dosage: UNK
     Dates: start: 20150527, end: 20150603
  14. NORVASC [Concomitant]
     Active Substance: AMLODIPINE BESYLATE
     Dosage: 20 MG, QD
  15. DIOVAN [Concomitant]
     Active Substance: VALSARTAN
     Dosage: 20 MG, QD
     Dates: end: 20150522
  16. BUFFERIN [Concomitant]
     Active Substance: ASPIRIN
     Dosage: 81 MG, QD
     Route: 048
     Dates: start: 20050425, end: 20150522
  17. ADCIRCA [Concomitant]
     Active Substance: TADALAFIL
     Dosage: 40 MG, QD
     Dates: start: 201506
  18. SOLU-MEDROL [Concomitant]
     Active Substance: METHYLPREDNISOLONE SODIUM SUCCINATE
     Dosage: UNK
     Dates: start: 20150524, end: 20150526

REACTIONS (6)
  - Acute respiratory distress syndrome [Unknown]
  - Iron deficiency anaemia [Recovered/Resolved]
  - Respiratory tract infection [Recovered/Resolved]
  - Interstitial lung disease [Recovered/Resolved]
  - Blood pressure decreased [Recovered/Resolved]
  - Off label use [Recovered/Resolved]

NARRATIVE: CASE EVENT DATE: 201110
